FAERS Safety Report 5143706-1 (Version None)
Quarter: 2006Q4

REPORT INFORMATION
  Report Type: 
  Country: None (occurrence: None)
  Receive Date: 20061103
  Receipt Date: 20060602
  Transmission Date: 20070319
  Serious: Yes (Hospitalization)
  Sender: FDA-Public Use
  Company Number: US-ABBOTT-06P-163-0334905-00

PATIENT
  Sex: Male
  Weight: 78.996 kg

DRUGS (17)
  1. HUMIRA [Suspect]
     Indication: RHEUMATOID ARTHRITIS
     Route: 058
     Dates: start: 20030401, end: 20060401
  2. LEFLUNOMIDE [Suspect]
     Indication: RHEUMATOID ARTHRITIS
     Dates: start: 20010901, end: 20060401
  3. UNSPECIFIED MEDICATION [Concomitant]
     Indication: TUBERCULOSIS
  4. HYDROXYCHLOROQUINE PHOSPHATE [Concomitant]
     Indication: RHEUMATOID ARTHRITIS
  5. METHOTREXATE SODIUM [Concomitant]
     Indication: RHEUMATOID ARTHRITIS
  6. MELOXICAM [Concomitant]
     Indication: RHEUMATOID ARTHRITIS
  7. LOSARTAN POTASSIUM [Concomitant]
     Indication: DRUG USE FOR UNKNOWN INDICATION
  8. ATENOLOL [Concomitant]
     Indication: DRUG USE FOR UNKNOWN INDICATION
  9. LATANOPROST [Concomitant]
     Indication: DRUG USE FOR UNKNOWN INDICATION
  10. ZOCOR [Concomitant]
     Indication: DRUG USE FOR UNKNOWN INDICATION
  11. ASPIRIN [Concomitant]
     Indication: DRUG USE FOR UNKNOWN INDICATION
  12. CALCIUM [Concomitant]
     Indication: DRUG USE FOR UNKNOWN INDICATION
     Route: 048
  13. DORZOLAMIDE HYDROCHLORIDE [Concomitant]
     Indication: DRUG USE FOR UNKNOWN INDICATION
     Route: 047
  14. TIMOLOL MALEATE [Concomitant]
     Indication: DRUG USE FOR UNKNOWN INDICATION
     Route: 047
  15. CENTRUM MULTIVITAMINS [Concomitant]
  16. ANCOVERT [Concomitant]
     Indication: DRUG USE FOR UNKNOWN INDICATION
  17. CYCLOBENZAPRINE HCL [Concomitant]
     Indication: DRUG USE FOR UNKNOWN INDICATION
     Route: 048

REACTIONS (11)
  - DISSEMINATED TUBERCULOSIS [None]
  - GASTRITIS [None]
  - HIATUS HERNIA [None]
  - HYPERHIDROSIS [None]
  - HYPOAESTHESIA [None]
  - LUMBAR RADICULOPATHY [None]
  - OESOPHAGEAL ULCER [None]
  - PARAESTHESIA [None]
  - SPINAL COLUMN STENOSIS [None]
  - SPINAL OSTEOARTHRITIS [None]
  - WEIGHT DECREASED [None]
